FAERS Safety Report 10062925 (Version 1)
Quarter: 2014Q1

REPORT INFORMATION
  Report Type: Spontaneous
  Country: US (occurrence: None)
  Receive Date: 20140318
  Receipt Date: 20140318
  Transmission Date: 20141002
  Serious: Yes (Hospitalization)
  Sender: FDA-Public Use
  Company Number: 163-21660-13084181

PATIENT
  Age: 72 Year
  Sex: Female

DRUGS (1)
  1. ABRAXANE ( PACLITAXEL) ( INJECTION) [Suspect]
     Indication: LUNG NEOPLASM MALIGNANT
     Dosage: 180 MG, 3 IN 28 D, IV
     Route: 042
     Dates: start: 20130324, end: 20130905

REACTIONS (2)
  - Infusion site extravasation [None]
  - Rash [None]
